FAERS Safety Report 4744016-4 (Version None)
Quarter: 2005Q3

REPORT INFORMATION
  Report Type: 
  Country: None (occurrence: None)
  Receive Date: 20050801
  Receipt Date: 20050216
  Transmission Date: 20060218
  Serious: Yes (Other)
  Sender: FDA-Public Use
  Company Number: 211721

PATIENT
  Age: 80 Year
  Sex: Male
  Weight: 67.9 kg

DRUGS (2)
  1. RITUXAN [Suspect]
     Indication: NON-HODGKIN'S LYMPHOMA
     Dates: start: 20040819, end: 20041007
  2. ARANESP [Suspect]
     Indication: ANAEMIA
     Dosage: 100 UG, 1/WEEK, SUBCUTANEOUS
     Route: 058
     Dates: start: 20040923, end: 20041007

REACTIONS (2)
  - RASH MACULO-PAPULAR [None]
  - SKIN EXFOLIATION [None]
